FAERS Safety Report 15145522 (Version 2)
Quarter: 2018Q3

REPORT INFORMATION
  Report Type: Report from Study
  Country: US (occurrence: US)
  Receive Date: 20180713
  Receipt Date: 20180719
  Transmission Date: 20181010
  Serious: No
  Sender: FDA-Public Use
  Company Number: PHEH2018US028825

PATIENT
  Sex: Female

DRUGS (1)
  1. ILARIS [Suspect]
     Active Substance: CANAKINUMAB
     Indication: PRODUCT USED FOR UNKNOWN INDICATION
     Dosage: 150 MG, QMO
     Route: 058

REACTIONS (6)
  - Myalgia [Unknown]
  - Pyrexia [Unknown]
  - Chest pain [Unknown]
  - Arthralgia [Unknown]
  - Condition aggravated [Unknown]
  - Abdominal pain upper [Unknown]
